FAERS Safety Report 11862738 (Version 1)
Quarter: 2015Q4

REPORT INFORMATION
  Report Type: Report from Study
  Country: ID (occurrence: ID)
  Receive Date: 20151223
  Receipt Date: 20151223
  Transmission Date: 20160305
  Serious: Yes (Other)
  Sender: FDA-Public Use
  Company Number: ID-ROCHE-1679145

PATIENT
  Age: 34 Year
  Sex: Female

DRUGS (1)
  1. PEGASYS [Suspect]
     Active Substance: PEGINTERFERON ALFA-2A
     Indication: HEPATITIS C
     Route: 065
     Dates: start: 20131214, end: 20141108

REACTIONS (7)
  - Alanine aminotransferase increased [Unknown]
  - Vomiting [Unknown]
  - Tubo-ovarian abscess [Unknown]
  - Pyrexia [Unknown]
  - Chills [Unknown]
  - Aspartate aminotransferase increased [Unknown]
  - Stupor [Unknown]
